FAERS Safety Report 6524818-4 (Version None)
Quarter: 2009Q4

REPORT INFORMATION
  Report Type: 
  Country: None (occurrence: None)
  Receive Date: 20091214
  Receipt Date: 20090625
  Transmission Date: 20100525
  Serious: Yes (Other)
  Sender: FDA-Public Use
  Company Number: 640676

PATIENT
  Age: 45 Year
  Sex: Female

DRUGS (7)
  1. PEGASYS [Suspect]
     Indication: HEPATITIS C
     Dosage: 180 UG 1 PER WEEK
     Dates: start: 20080715, end: 20090714
  2. RIBAVIRIN [Suspect]
     Indication: HEPATITIS C
     Dosage: 1200 MG DAILY
     Dates: start: 20080715, end: 20090401
  3. NEUPOGEN [Concomitant]
  4. PROCRIT [Concomitant]
  5. IRON (IRON NOS) [Concomitant]
  6. ZOLOFT [Concomitant]
  7. XANAX [Concomitant]

REACTIONS (14)
  - ALOPECIA [None]
  - ARTHRALGIA [None]
  - ASTHENIA [None]
  - BACK PAIN [None]
  - BALANCE DISORDER [None]
  - DECREASED APPETITE [None]
  - DEPRESSION [None]
  - DIZZINESS [None]
  - HAEMOGLOBIN DECREASED [None]
  - HEADACHE [None]
  - LOSS OF CONSCIOUSNESS [None]
  - TACHYCARDIA [None]
  - WEIGHT DECREASED [None]
  - WHITE BLOOD CELL COUNT DECREASED [None]
